FAERS Safety Report 6430920-8 (Version None)
Quarter: 2009Q4

REPORT INFORMATION
  Report Type: 
  Country: None (occurrence: None)
  Receive Date: 20091106
  Receipt Date: 20091026
  Transmission Date: 20100525
  Serious: Yes (Death)
  Sender: FDA-Public Use
  Company Number: GB-BRISTOL-MYERS SQUIBB COMPANY-14831135

PATIENT
  Age: 62 Year
  Sex: Female

DRUGS (9)
  1. CISPLATIN [Suspect]
     Indication: MEDIASTINAL DISORDER
     Dosage: ON DAYS 1 AND 2
  2. CYCLOPHOSPHAMIDE [Suspect]
     Indication: GESTATIONAL TROPHOBLASTIC TUMOUR
  3. ETOPOSIDE [Suspect]
     Indication: MEDIASTINAL DISORDER
     Dosage: DAYS 1 AND 2
  4. ETOPOSIDE [Suspect]
     Indication: GESTATIONAL TROPHOBLASTIC TUMOUR
     Dosage: DAYS 1 AND 2
  5. DACTINOMYCIN [Suspect]
     Indication: GESTATIONAL TROPHOBLASTIC TUMOUR
  6. METHOTREXATE [Suspect]
     Indication: GESTATIONAL TROPHOBLASTIC TUMOUR
  7. VINCRISTINE [Suspect]
     Indication: GESTATIONAL TROPHOBLASTIC TUMOUR
  8. BECLOMETHASONE DIPROPIONATE [Concomitant]
     Indication: CHRONIC OBSTRUCTIVE PULMONARY DISEASE
  9. ALBUTEROL [Concomitant]
     Indication: CHRONIC OBSTRUCTIVE PULMONARY DISEASE

REACTIONS (3)
  - NEUTROPENIC SEPSIS [None]
  - RENAL FAILURE ACUTE [None]
  - TOXIC EPIDERMAL NECROLYSIS [None]
